FAERS Safety Report 24751920 (Version 1)
Quarter: 2024Q4

REPORT INFORMATION
  Report Type: Spontaneous
  Country: US (occurrence: None)
  Receive Date: 20241219
  Receipt Date: 20241219
  Transmission Date: 20250115
  Serious: Yes (Death, Life-Threatening, Other)
  Sender: INFORLIFE
  Company Number: US-INFO-20240380

PATIENT
  Age: 50 Year
  Sex: Male

DRUGS (1)
  1. LEVOFLOXACIN [Suspect]
     Active Substance: LEVOFLOXACIN
     Indication: Pneumonia legionella

REACTIONS (2)
  - Drug ineffective [Not Recovered/Not Resolved]
  - Haemophagocytic lymphohistiocytosis [Fatal]
